FAERS Safety Report 6402941-2 (Version None)
Quarter: 2009Q4

REPORT INFORMATION
  Report Type: 
  Country: None (occurrence: None)
  Receive Date: 20091016
  Receipt Date: 20091013
  Transmission Date: 20100525
  Serious: Yes (Death)
  Sender: FDA-Public Use
  Company Number: US-ASTRAZENECA-2007UW11458

PATIENT
  Age: 720 Month
  Sex: Female

DRUGS (7)
  1. SEROQUEL [Suspect]
     Indication: BIPOLAR DISORDER
     Route: 048
     Dates: start: 20021009, end: 20040213
  2. SEROQUEL [Suspect]
     Indication: DEPRESSION
     Route: 048
     Dates: start: 20021009, end: 20040213
  3. ZYPREXA [Concomitant]
     Indication: BIPOLAR DISORDER
  4. ZYPREXA [Concomitant]
     Indication: DEPRESSION
  5. LITHIUM [Concomitant]
  6. LORAZEPAM [Concomitant]
  7. DOXEPIN HCL [Concomitant]

REACTIONS (2)
  - DEATH [None]
  - TYPE 2 DIABETES MELLITUS [None]
